FAERS Safety Report 24988840 (Version 1)
Quarter: 2025Q1

REPORT INFORMATION
  Report Type: Spontaneous
  Country: US (occurrence: US)
  Receive Date: 20250220
  Receipt Date: 20250220
  Transmission Date: 20250408
  Serious: Yes (Other)
  Sender: ELI LILLY AND COMPANY
  Company Number: US-ELI_LILLY_AND_COMPANY-US202502009306

PATIENT
  Age: 67 Year
  Sex: Female

DRUGS (3)
  1. HUMALOG [Suspect]
     Active Substance: INSULIN LISPRO
     Indication: Diabetes mellitus
     Route: 065
     Dates: start: 2012, end: 2018
  2. HUMALOG [Suspect]
     Active Substance: INSULIN LISPRO
     Dosage: 40-50 U, DAILY
     Route: 065
  3. LEVEMIR [Concomitant]
     Active Substance: INSULIN DETEMIR
     Indication: Diabetes mellitus
     Dosage: 85 INTERNATIONAL UNIT, DAILY
     Route: 058
     Dates: start: 2012

REACTIONS (2)
  - Blood glucose decreased [Recovered/Resolved]
  - Glycosylated haemoglobin increased [Unknown]

NARRATIVE: CASE EVENT DATE: 20180101
